FAERS Safety Report 21028589 (Version 1)
Quarter: 2022Q2

REPORT INFORMATION
  Report Type: Spontaneous
  Country: FR (occurrence: FR)
  Receive Date: 20220630
  Receipt Date: 20220630
  Transmission Date: 20220721
  Serious: Yes (Hospitalization)
  Sender: FDA-Public Use
  Company Number: None

PATIENT
  Age: 55 Year
  Sex: Male
  Weight: 73 kg

DRUGS (5)
  1. ESOMEPRAZOLE [Suspect]
     Active Substance: ESOMEPRAZOLE
     Indication: Gastrooesophageal reflux disease
     Dosage: 40 MILLIGRAM DAILY; 0-0-40MG , DURATION : 1 MONTHS
     Route: 048
     Dates: start: 20220518, end: 20220601
  2. ESOMEPRAZOLE [Suspect]
     Active Substance: ESOMEPRAZOLE
     Dosage: 20 MILLIGRAM DAILY; 0-0-20MG , DURATION : 9 YEARS
     Route: 048
     Dates: start: 2014, end: 20220517
  3. METFORMIN HYDROCHLORIDE [Suspect]
     Active Substance: METFORMIN HYDROCHLORIDE
     Indication: Diabetes mellitus
     Dosage: 2000 MILLIGRAM DAILY; 1000-0-1000MG , METFORMINE (CHLORHYDRATE DE) , THERAPY START DATE : NASK , UNI
     Route: 048
     Dates: end: 20220601
  4. PRAVASTATIN SODIUM [Suspect]
     Active Substance: PRAVASTATIN SODIUM
     Indication: Dyslipidaemia
     Dosage: 20 MILLIGRAM DAILY; 0-0-20MG , PRAVASTATINE SODIQUE ,DURATION : 7 YEARS
     Route: 048
     Dates: start: 2015, end: 20220601
  5. EXFORGE [Suspect]
     Active Substance: AMLODIPINE BESYLATE\VALSARTAN
     Indication: Hypertension
     Dosage: 10+160-0-0 , UNIT DOSE : 170 MG , FREQUENCY TIME : 1 DAYS , DURATION : 1 YEARS, EXFORGE 10 MG/160 MG
     Route: 048
     Dates: start: 202104, end: 20220601

REACTIONS (1)
  - Pancreatitis acute [Recovering/Resolving]

NARRATIVE: CASE EVENT DATE: 20220601
